FAERS Safety Report 5463985-0 (Version None)
Quarter: 2007Q3

REPORT INFORMATION
  Report Type: 
  Country: None (occurrence: None)
  Receive Date: 20070921
  Receipt Date: 20070914
  Transmission Date: 20080115
  Serious: Yes (Other)
  Sender: FDA-Public Use
  Company Number: US-ASTRAZENECA-2007UW21808

PATIENT

DRUGS (2)
  1. FASLODEX [Suspect]
     Route: 030
     Dates: start: 20070829
  2. FASLODEX [Suspect]
     Route: 030
     Dates: start: 20070912

REACTIONS (3)
  - INCORRECT DOSE ADMINISTERED [None]
  - LYMPHADENOPATHY [None]
  - OVERDOSE [None]
